FAERS Safety Report 24097931 (Version 2)
Quarter: 2024Q3

REPORT INFORMATION
  Report Type: Spontaneous
  Country: US (occurrence: None)
  Receive Date: 20240716
  Receipt Date: 20240821
  Transmission Date: 20241017
  Serious: Yes (Other)
  Sender: ASTRAZENECA
  Company Number: 2024A156373

PATIENT
  Sex: Female

DRUGS (1)
  1. SAPHNELO [Suspect]
     Active Substance: ANIFROLUMAB-FNIA

REACTIONS (27)
  - Blood pressure increased [Unknown]
  - Fluid retention [Unknown]
  - Illness [Unknown]
  - Brain fog [Unknown]
  - Oropharyngeal pain [Unknown]
  - Dyspnoea exertional [Unknown]
  - Feeling abnormal [Unknown]
  - Insomnia [Unknown]
  - Palpitations [Unknown]
  - Depression [Unknown]
  - Mood altered [Unknown]
  - Irritability [Unknown]
  - Anxiety [Unknown]
  - Crying [Unknown]
  - Abdominal distension [Unknown]
  - Oedema peripheral [Unknown]
  - Abdominal distension [Unknown]
  - Mobility decreased [Unknown]
  - Ventricular extrasystoles [Unknown]
  - Throat tightness [Unknown]
  - Chest discomfort [Unknown]
  - Fatigue [Unknown]
  - Decreased interest [Unknown]
  - Lung disorder [Unknown]
  - Productive cough [Unknown]
  - Malaise [Unknown]
  - Memory impairment [Unknown]
